FAERS Safety Report 11144279 (Version 2)
Quarter: 2015Q2

REPORT INFORMATION
  Report Type: Spontaneous
  Country: GR (occurrence: GR)
  Receive Date: 20150528
  Receipt Date: 20150609
  Transmission Date: 20150821
  Serious: Yes (Hospitalization)
  Sender: FDA-Public Use
  Company Number: GR-TEVA-565714ISR

PATIENT
  Age: 73 Year
  Sex: Female

DRUGS (6)
  1. ZOLEDRONIC ACID [Suspect]
     Active Substance: ZOLEDRONIC ACID
     Dosage: ADMINISTERED 4 MONTH AGO
     Route: 042
  2. 25(OH)D3 [Suspect]
     Active Substance: CALCIFEDIOL ANHYDROUS
     Dosage: 1600 IU (INTERNATIONAL UNIT) DAILY;
     Route: 065
  3. PACLITAXEL. [Suspect]
     Active Substance: PACLITAXEL
     Dosage: ADMINISTERED 2 MONTHS AGO
     Route: 042
  4. CARBOPLATIN. [Suspect]
     Active Substance: CARBOPLATIN
     Dosage: ADMINISTERED 2 MONTHS AGO
     Route: 042
  5. CALCIUM CARBONATE. [Suspect]
     Active Substance: CALCIUM CARBONATE
     Dosage: 4 GRAM DAILY;
     Route: 048
  6. ALFACALCIDOL [Suspect]
     Active Substance: ALFACALCIDOL
     Dosage: 2 MICROGRAM DAILY;
     Route: 065

REACTIONS (6)
  - Muscular weakness [Unknown]
  - Hypoaesthesia oral [Unknown]
  - Trousseau^s sign [Unknown]
  - Hypocalcaemia [Unknown]
  - Muscle spasms [Unknown]
  - Chvostek^s sign [Unknown]
